FAERS Safety Report 5565604-1 (Version None)
Quarter: 2007Q4

REPORT INFORMATION
  Report Type: 
  Country: None (occurrence: None)
  Receive Date: 20071218
  Receipt Date: 20070215
  Transmission Date: 20080405
  Serious: No
  Sender: FDA-Public Use
  Company Number: US-BOEHRINGER INGELHEIM PHARMACEUTICALS, INC.-2007-BP-02309BP

PATIENT
  Sex: Male

DRUGS (5)
  1. SPIRIVA [Suspect]
     Indication: CHRONIC OBSTRUCTIVE PULMONARY DISEASE
     Route: 055
     Dates: start: 20070110
  2. PROSCAR [Concomitant]
     Indication: PROSTATOMEGALY
     Route: 048
  3. ASPIRIN [Concomitant]
     Route: 048
  4. PROCARDIA [Concomitant]
     Indication: BLOOD PRESSURE INCREASED
     Route: 048
  5. ALBUTEROL [Concomitant]

REACTIONS (2)
  - COUGH [None]
  - URTICARIA [None]
